FAERS Safety Report 8827802 (Version 2)
Quarter: 2012Q4

REPORT INFORMATION
  Report Type: 
  Country: US (occurrence: US)
  Receive Date: 20121005
  Receipt Date: 20121128
  Transmission Date: 20130627
  Serious: Yes (Hospitalization, Other)
  Sender: FDA-Public Use
  Company Number: US-JNJFOC-20120911462

PATIENT
  Sex: Male
  Weight: 93.9 kg

DRUGS (4)
  1. SIMPONI [Suspect]
     Indication: RHEUMATIC DISORDER
     Route: 058
     Dates: start: 201101, end: 2012
  2. SIMPONI [Suspect]
     Indication: RHEUMATIC DISORDER
     Route: 058
     Dates: start: 2012
  3. ENBREL [Concomitant]
     Indication: RHEUMATIC DISORDER
     Route: 065
     Dates: start: 2010, end: 201012
  4. ZANTAC [Concomitant]
     Indication: GASTROOESOPHAGEAL REFLUX DISEASE
     Route: 048

REACTIONS (9)
  - Intraocular pressure increased [Recovered/Resolved]
  - Impaired healing [Unknown]
  - Upper respiratory tract infection [Recovered/Resolved]
  - Gastrointestinal infection [Recovered/Resolved]
  - Visual impairment [Not Recovered/Not Resolved]
  - Drug effect incomplete [Recovered/Resolved]
  - Arthralgia [Unknown]
  - Device malfunction [Recovered/Resolved]
  - Respiratory disorder [Not Recovered/Not Resolved]
